FAERS Safety Report 7479398-6 (Version None)
Quarter: 2011Q2

REPORT INFORMATION
  Report Type: 
  Country: None (occurrence: None)
  Receive Date: 20110513
  Receipt Date: 20110509
  Transmission Date: 20111010
  Serious: Yes (Life-Threatening)
  Sender: FDA-Public Use
  Company Number: FR-PFIZER INC-2011098483

PATIENT
  Age: 43 Year
  Sex: Female

DRUGS (9)
  1. AMITRIPTYLINE HCL [Suspect]
     Indication: NEURALGIA
     Dosage: 5 DROPS IN THE MORINING, 8 DROPS IN THE EVENING
     Route: 048
     Dates: start: 20110329, end: 20110329
  2. DEDROGYL [Concomitant]
  3. GARDENALE [Concomitant]
     Dosage: 100 MG
     Dates: start: 20110329, end: 20110329
  4. KERLONE [Concomitant]
     Dosage: 20 MG
  5. ALEPSAL [Concomitant]
     Dosage: 100 MG
  6. LYRICA [Suspect]
     Indication: NEURALGIA
     Dosage: 75 MG, 2X/DAY
     Route: 048
     Dates: start: 20110329, end: 20110329
  7. LYRICA [Suspect]
     Indication: GRIP STRENGTH
  8. URBANYL [Concomitant]
     Dosage: 10 MG
  9. AMITRIPTYLINE HCL [Suspect]
     Indication: GRIP STRENGTH

REACTIONS (2)
  - GRAND MAL CONVULSION [None]
  - STATUS EPILEPTICUS [None]
